FAERS Safety Report 13333795 (Version 1)
Quarter: 2017Q1

REPORT INFORMATION
  Report Type: Spontaneous
  Country: PT (occurrence: PT)
  Receive Date: 20170314
  Receipt Date: 20170314
  Transmission Date: 20170428
  Serious: Yes (Life-Threatening)
  Sender: FDA-Public Use
  Company Number: PT-TEVA-747105ISR

PATIENT
  Age: 41 Year
  Sex: Male

DRUGS (3)
  1. AMOXICILINA 875MG+ ACIDO CLAVULANICO 125MG RATIOPHARM [Suspect]
     Active Substance: AMOXICILLIN\CLAVULANIC ACID
     Indication: TONSILLITIS
     Dosage: 2 DOSAGE FORMS DAILY; AMOX-875MG/CLAV-125MG
     Route: 048
     Dates: start: 20170208, end: 20170211
  2. METAMIZOLE MAGNESIUM [Concomitant]
     Active Substance: METAMIZOLE MAGNESIUM
     Indication: TONSILLITIS
     Dosage: 1725 MILLIGRAM DAILY;
     Route: 048
  3. IBUPROFEN. [Concomitant]
     Active Substance: IBUPROFEN
     Indication: TONSILLITIS
     Dosage: 1200 MILLIGRAM DAILY;
     Route: 048

REACTIONS (15)
  - Blood potassium abnormal [Recovered/Resolved]
  - Throat irritation [Recovered/Resolved]
  - Pharyngeal inflammation [Recovered/Resolved]
  - Pain [None]
  - Dyspepsia [Recovered/Resolved]
  - Nausea [Recovered/Resolved]
  - Pain [Recovered/Resolved]
  - Body temperature decreased [Recovered/Resolved]
  - Heart rate decreased [Recovered/Resolved]
  - Generalised erythema [Recovered/Resolved]
  - Diarrhoea [Recovered/Resolved]
  - Hyperhidrosis [Recovered/Resolved]
  - Incorrect drug administration duration [Unknown]
  - Anorectal discomfort [Recovered/Resolved]
  - Abdominal pain upper [Recovered/Resolved]

NARRATIVE: CASE EVENT DATE: 20170211
